FAERS Safety Report 5837852-4 (Version None)
Quarter: 2008Q3

REPORT INFORMATION
  Report Type: 
  Country: None (occurrence: None)
  Receive Date: 20080808
  Receipt Date: 20080221
  Transmission Date: 20090109
  Serious: No
  Sender: FDA-Public Use
  Company Number: A0707194A

PATIENT
  Age: 48 Year
  Sex: Female

DRUGS (5)
  1. PAXIL CR [Suspect]
     Indication: STRESS
     Dosage: 25MG PER DAY
     Route: 048
     Dates: start: 20070301
  2. ESTRATEST [Concomitant]
  3. ZYRTEC [Concomitant]
  4. TETRACYCLINE [Concomitant]
  5. AVALIDE [Concomitant]

REACTIONS (2)
  - PHARMACEUTICAL PRODUCT COMPLAINT [None]
  - YAWNING [None]
